FAERS Safety Report 19441557 (Version 4)
Quarter: 2021Q3

REPORT INFORMATION
  Report Type: Report from Study
  Country: CA (occurrence: CA)
  Receive Date: 20210621
  Receipt Date: 20210826
  Transmission Date: 20211014
  Serious: Yes (Hospitalization)
  Sender: FDA-Public Use
  Company Number: CA-JNJFOC-20210630353

PATIENT
  Age: 30 Year
  Sex: Male
  Weight: 46 kg

DRUGS (1)
  1. REMICADE [Suspect]
     Active Substance: INFLIXIMAB
     Indication: CROHN^S DISEASE
     Dosage: ON 19?AUG?2021 (TODAY), THE DOCTOR GAVE AUTHORIZATION TO RECEIVE INFUSION.
     Route: 042
     Dates: start: 20100316

REACTIONS (6)
  - Staphylococcal infection [Recovering/Resolving]
  - Osteomyelitis [Recovering/Resolving]
  - Nasal vestibulitis [Unknown]
  - Abdominal pain [Not Recovered/Not Resolved]
  - Diarrhoea [Not Recovered/Not Resolved]
  - Folliculitis [Recovering/Resolving]

NARRATIVE: CASE EVENT DATE: 20210701
